FAERS Safety Report 18356452 (Version 3)
Quarter: 2021Q1

REPORT INFORMATION
  Report Type: Report from Study
  Country: US (occurrence: US)
  Receive Date: 20201007
  Receipt Date: 20210111
  Transmission Date: 20210419
  Serious: Yes (Hospitalization, Other)
  Sender: FDA-Public Use
  Company Number: US-GLAXOSMITHKLINE-US2019TSO170511

PATIENT
  Sex: Female

DRUGS (8)
  1. NIRAPARIB [Suspect]
     Active Substance: NIRAPARIB
     Indication: OVARIAN CANCER
     Dosage: 300 MG, QPM WITH FOOD
     Route: 048
     Dates: start: 20190901
  2. NIRAPARIB [Suspect]
     Active Substance: NIRAPARIB
     Dosage: 300 MG, QPM WITH FOOD
     Route: 048
     Dates: end: 20191012
  3. NIRAPARIB [Suspect]
     Active Substance: NIRAPARIB
     Dosage: 200 MG, QD
     Route: 048
  4. NIRAPARIB [Suspect]
     Active Substance: NIRAPARIB
     Dosage: 100 MG, QD
     Route: 048
  5. NIRAPARIB [Suspect]
     Active Substance: NIRAPARIB
     Dosage: 100 MG, QD (2 CAPSULES AT BEDTIME)
     Route: 048
  6. IRON [Concomitant]
     Active Substance: IRON
     Indication: PRODUCT USED FOR UNKNOWN INDICATION
     Dosage: UNK
     Route: 042
  7. NIRAPARIB [Suspect]
     Active Substance: NIRAPARIB
     Dosage: 200 MG, QD
     Route: 048
  8. NIRAPARIB [Suspect]
     Active Substance: NIRAPARIB
     Dosage: 100 MG, QD
     Route: 048
     Dates: start: 20190828

REACTIONS (9)
  - Blood count abnormal [Unknown]
  - Nausea [Recovering/Resolving]
  - Carbohydrate antigen 125 increased [Unknown]
  - Platelet count decreased [Unknown]
  - Pulmonary arterial hypertension [Unknown]
  - Fatigue [Unknown]
  - Anxiety [Unknown]
  - Depression [Unknown]
  - Dyspnoea [Unknown]

NARRATIVE: CASE EVENT DATE: 2019
